FAERS Safety Report 11714872 (Version 6)
Quarter: 2016Q2

REPORT INFORMATION
  Report Type: Report from Study
  Country: US (occurrence: US)
  Receive Date: 20151109
  Receipt Date: 20160620
  Transmission Date: 20160815
  Serious: Yes (Hospitalization)
  Sender: FDA-Public Use
  Company Number: US-ACTELION-A-NJ2015-126816

PATIENT
  Age: 71 Year
  Sex: Male

DRUGS (3)
  1. TREPROSTINIL DIOLAMIN [Concomitant]
     Active Substance: TREPROSTINIL DIOLAMINE
  2. TRACLEER [Suspect]
     Active Substance: BOSENTAN
     Indication: PULMONARY ARTERIAL HYPERTENSION
     Dosage: 125 MG, BID
     Route: 048
     Dates: start: 20150511
  3. SILDENAFIL. [Concomitant]
     Active Substance: SILDENAFIL

REACTIONS (21)
  - Pneumonia [Unknown]
  - Peripheral swelling [Unknown]
  - Weight increased [Unknown]
  - Lung infection [Unknown]
  - Acute respiratory failure [Unknown]
  - Anxiety [Unknown]
  - Nasopharyngitis [Unknown]
  - Chest discomfort [Unknown]
  - Dizziness [Unknown]
  - Cough [Unknown]
  - Red blood cell count increased [Unknown]
  - Erythema [Unknown]
  - Abdominal pain upper [Unknown]
  - Fall [Unknown]
  - Flushing [Unknown]
  - Heart rate increased [Unknown]
  - White blood cell count increased [Unknown]
  - Feeling hot [Unknown]
  - Infection [Unknown]
  - Pulmonary oedema [Unknown]
  - Oxygen saturation decreased [Unknown]
